FAERS Safety Report 8141329-3 (Version None)
Quarter: 2012Q1

REPORT INFORMATION
  Report Type: 
  Country: None (occurrence: None)
  Receive Date: 20120216
  Receipt Date: 20120209
  Transmission Date: 20120608
  Serious: Yes (Hospitalization)
  Sender: FDA-Public Use
  Company Number: FR-B.I. PHARMACEUTICALS,INC./RIDGEFIELD-2012-FF-00176FF

PATIENT
  Sex: Male
  Weight: 70 kg

DRUGS (4)
  1. PRADAXA [Suspect]
     Indication: HIP ARTHROPLASTY
     Dosage: 110 MG
     Route: 048
     Dates: start: 20111125, end: 20111125
  2. PRADAXA [Suspect]
     Dosage: 220 MG
     Route: 048
     Dates: start: 20111126
  3. KETOPROFEN [Concomitant]
     Dosage: 200 MG
     Dates: start: 20111125, end: 20111127
  4. OMEPRAZOLE [Concomitant]
     Dosage: 2 INJECTIONS
     Route: 042
     Dates: start: 20111125, end: 20111125

REACTIONS (1)
  - RENAL COLIC [None]
